FAERS Safety Report 25554677 (Version 1)
Quarter: 2025Q3

REPORT INFORMATION
  Report Type: Spontaneous
  Country: CN (occurrence: CN)
  Receive Date: 20250715
  Receipt Date: 20250715
  Transmission Date: 20251021
  Serious: Yes (Death, Hospitalization)
  Sender: MYLAN
  Company Number: CN-MYLANLABS-2025M1059365

PATIENT
  Age: 61 Year

DRUGS (52)
  1. PANTOPRAZOLE [Suspect]
     Active Substance: PANTOPRAZOLE
     Indication: Chemical poisoning
     Dosage: 40 MILLIGRAM, BID
  2. PANTOPRAZOLE [Suspect]
     Active Substance: PANTOPRAZOLE
     Dosage: 40 MILLIGRAM, BID
     Route: 042
  3. PANTOPRAZOLE [Suspect]
     Active Substance: PANTOPRAZOLE
     Dosage: 40 MILLIGRAM, BID
     Route: 042
  4. PANTOPRAZOLE [Suspect]
     Active Substance: PANTOPRAZOLE
     Dosage: 40 MILLIGRAM, BID
  5. BIAPENEM [Suspect]
     Active Substance: BIAPENEM
     Indication: Antibiotic therapy
     Dosage: 0.3 GRAM, Q8H
  6. BIAPENEM [Suspect]
     Active Substance: BIAPENEM
     Dosage: 0.3 GRAM, Q8H
     Route: 042
  7. BIAPENEM [Suspect]
     Active Substance: BIAPENEM
     Dosage: 0.3 GRAM, Q8H
     Route: 042
  8. BIAPENEM [Suspect]
     Active Substance: BIAPENEM
     Dosage: 0.3 GRAM, Q8H
  9. VORICONAZOLE [Suspect]
     Active Substance: VORICONAZOLE
     Indication: Antibiotic therapy
  10. VORICONAZOLE [Suspect]
     Active Substance: VORICONAZOLE
     Route: 065
  11. VORICONAZOLE [Suspect]
     Active Substance: VORICONAZOLE
     Route: 065
  12. VORICONAZOLE [Suspect]
     Active Substance: VORICONAZOLE
  13. VORICONAZOLE [Suspect]
     Active Substance: VORICONAZOLE
     Indication: Antibiotic therapy
     Dosage: 200 MILLIGRAM, Q8H
  14. VORICONAZOLE [Suspect]
     Active Substance: VORICONAZOLE
     Dosage: 200 MILLIGRAM, Q8H
  15. VORICONAZOLE [Suspect]
     Active Substance: VORICONAZOLE
     Dosage: 200 MILLIGRAM, Q8H
     Route: 042
  16. VORICONAZOLE [Suspect]
     Active Substance: VORICONAZOLE
     Dosage: 200 MILLIGRAM, Q8H
     Route: 042
  17. VORICONAZOLE [Suspect]
     Active Substance: VORICONAZOLE
     Dosage: 200 MILLIGRAM, Q8H
  18. VORICONAZOLE [Suspect]
     Active Substance: VORICONAZOLE
     Dosage: 200 MILLIGRAM, Q8H
  19. VORICONAZOLE [Suspect]
     Active Substance: VORICONAZOLE
     Dosage: 200 MILLIGRAM, Q8H
     Route: 042
  20. VORICONAZOLE [Suspect]
     Active Substance: VORICONAZOLE
     Dosage: 200 MILLIGRAM, Q8H
     Route: 042
  21. METHYLPREDNISOLONE SODIUM SUCCINATE [Suspect]
     Active Substance: METHYLPREDNISOLONE SODIUM SUCCINATE
     Indication: Chemical poisoning
     Dosage: 80 MILLIGRAM, Q8H
  22. METHYLPREDNISOLONE SODIUM SUCCINATE [Suspect]
     Active Substance: METHYLPREDNISOLONE SODIUM SUCCINATE
     Dosage: 80 MILLIGRAM, Q8H
  23. METHYLPREDNISOLONE SODIUM SUCCINATE [Suspect]
     Active Substance: METHYLPREDNISOLONE SODIUM SUCCINATE
     Dosage: 80 MILLIGRAM, Q8H
     Route: 065
  24. METHYLPREDNISOLONE SODIUM SUCCINATE [Suspect]
     Active Substance: METHYLPREDNISOLONE SODIUM SUCCINATE
     Dosage: 80 MILLIGRAM, Q8H
     Route: 065
  25. METHYLPREDNISOLONE SODIUM SUCCINATE [Suspect]
     Active Substance: METHYLPREDNISOLONE SODIUM SUCCINATE
  26. METHYLPREDNISOLONE SODIUM SUCCINATE [Suspect]
     Active Substance: METHYLPREDNISOLONE SODIUM SUCCINATE
  27. METHYLPREDNISOLONE SODIUM SUCCINATE [Suspect]
     Active Substance: METHYLPREDNISOLONE SODIUM SUCCINATE
     Route: 065
  28. METHYLPREDNISOLONE SODIUM SUCCINATE [Suspect]
     Active Substance: METHYLPREDNISOLONE SODIUM SUCCINATE
     Route: 065
  29. VITAMIN C [Suspect]
     Active Substance: ASCORBIC ACID
     Indication: Chemical poisoning
     Dosage: 3 GRAM, QD
  30. VITAMIN C [Suspect]
     Active Substance: ASCORBIC ACID
     Dosage: 3 GRAM, QD
     Route: 042
  31. VITAMIN C [Suspect]
     Active Substance: ASCORBIC ACID
     Dosage: 3 GRAM, QD
     Route: 042
  32. VITAMIN C [Suspect]
     Active Substance: ASCORBIC ACID
     Dosage: 3 GRAM, QD
  33. MAGNESIUM ISOGLYCYRRHIZINATE [Suspect]
     Active Substance: MAGNESIUM ISOGLYCYRRHIZINATE
     Indication: Chemical poisoning
     Dosage: 100 MILLIGRAM, QD
  34. MAGNESIUM ISOGLYCYRRHIZINATE [Suspect]
     Active Substance: MAGNESIUM ISOGLYCYRRHIZINATE
     Dosage: 100 MILLIGRAM, QD
     Route: 065
  35. MAGNESIUM ISOGLYCYRRHIZINATE [Suspect]
     Active Substance: MAGNESIUM ISOGLYCYRRHIZINATE
     Dosage: 100 MILLIGRAM, QD
     Route: 065
  36. MAGNESIUM ISOGLYCYRRHIZINATE [Suspect]
     Active Substance: MAGNESIUM ISOGLYCYRRHIZINATE
     Dosage: 100 MILLIGRAM, QD
  37. PIPERACILLIN AND TAZOBACTAM [Suspect]
     Active Substance: PIPERACILLIN SODIUM\TAZOBACTAM SODIUM
     Indication: Antibiotic therapy
     Dosage: 4.5 GRAM, Q8H
  38. PIPERACILLIN AND TAZOBACTAM [Suspect]
     Active Substance: PIPERACILLIN SODIUM\TAZOBACTAM SODIUM
     Dosage: 4.5 GRAM, Q8H
     Route: 042
  39. PIPERACILLIN AND TAZOBACTAM [Suspect]
     Active Substance: PIPERACILLIN SODIUM\TAZOBACTAM SODIUM
     Dosage: 4.5 GRAM, Q8H
     Route: 042
  40. PIPERACILLIN AND TAZOBACTAM [Suspect]
     Active Substance: PIPERACILLIN SODIUM\TAZOBACTAM SODIUM
     Dosage: 4.5 GRAM, Q8H
  41. LINEZOLID [Suspect]
     Active Substance: LINEZOLID
     Indication: Staphylococcal infection
     Dosage: 0.6 GRAM, QD
  42. LINEZOLID [Suspect]
     Active Substance: LINEZOLID
     Dosage: 0.6 GRAM, QD
     Route: 042
  43. LINEZOLID [Suspect]
     Active Substance: LINEZOLID
     Dosage: 0.6 GRAM, QD
     Route: 042
  44. LINEZOLID [Suspect]
     Active Substance: LINEZOLID
     Dosage: 0.6 GRAM, QD
  45. Imunoglobulin [Concomitant]
     Indication: Disseminated intravascular coagulation
  46. Imunoglobulin [Concomitant]
     Route: 042
  47. Imunoglobulin [Concomitant]
     Route: 042
  48. Imunoglobulin [Concomitant]
  49. HUMAN PLASMA [Concomitant]
     Active Substance: HUMAN PLASMA
     Indication: Disseminated intravascular coagulation
  50. HUMAN PLASMA [Concomitant]
     Active Substance: HUMAN PLASMA
     Route: 065
  51. HUMAN PLASMA [Concomitant]
     Active Substance: HUMAN PLASMA
     Route: 065
  52. HUMAN PLASMA [Concomitant]
     Active Substance: HUMAN PLASMA

REACTIONS (2)
  - Drug ineffective for unapproved indication [Fatal]
  - Off label use [Unknown]
